FAERS Safety Report 11875424 (Version 1)
Quarter: 2015Q4

REPORT INFORMATION
  Report Type: Spontaneous
  Country: US (occurrence: None)
  Receive Date: 20151228
  Receipt Date: 20151228
  Transmission Date: 20160305
  Serious: No
  Sender: FDA-Public Use
  Company Number: None

PATIENT
  Age: 68 Year
  Sex: Female

DRUGS (12)
  1. CYCLOBENZAPRINE [Concomitant]
     Active Substance: CYCLOBENZAPRINE
  2. GLIPIZIDE. [Concomitant]
     Active Substance: GLIPIZIDE
  3. METOPROLOL [Concomitant]
     Active Substance: METOPROLOL
  4. HYDROCODONE/APAP [Concomitant]
     Active Substance: ACETAMINOPHEN\HYDROCODONE BITARTRATE
  5. HYDROCHLOROTHIAZIDE. [Concomitant]
     Active Substance: HYDROCHLOROTHIAZIDE
  6. METHOTREXATE [Concomitant]
     Active Substance: METHOTREXATE
  7. IRBESARTAN. [Concomitant]
     Active Substance: IRBESARTAN
  8. ENBREL [Suspect]
     Active Substance: ETANERCEPT
     Indication: RHEUMATOID ARTHRITIS
     Route: 058
     Dates: start: 20150728
  9. PLOGLITA/MET [Concomitant]
  10. FOLIC ACID. [Concomitant]
     Active Substance: FOLIC ACID
  11. LEVOTHYROXINE. [Concomitant]
     Active Substance: LEVOTHYROXINE
  12. XARELTO [Concomitant]
     Active Substance: RIVAROXABAN

REACTIONS (2)
  - Drug dose omission [None]
  - Surgery [None]

NARRATIVE: CASE EVENT DATE: 201512
